FAERS Safety Report 7729124-8 (Version None)
Quarter: 2011Q3

REPORT INFORMATION
  Report Type: 
  Country: None (occurrence: None)
  Receive Date: 20110906
  Receipt Date: 20110810
  Transmission Date: 20111222
  Serious: No
  Sender: FDA-Public Use
  Company Number: US-BAYER-2011-072015

PATIENT
  Sex: Female

DRUGS (1)
  1. BEYAZ [Suspect]
     Dosage: UNK
     Dates: start: 20110101

REACTIONS (4)
  - MALAISE [None]
  - WEIGHT INCREASED [None]
  - ABDOMINAL DISTENSION [None]
  - HEADACHE [None]
